FAERS Safety Report 6079284-2 (Version None)
Quarter: 2009Q1

REPORT INFORMATION
  Report Type: 
  Country: None (occurrence: None)
  Receive Date: 20090216
  Receipt Date: 20090209
  Transmission Date: 20090719
  Serious: Yes (Death, Hospitalization, Other)
  Sender: FDA-Public Use
  Company Number: US-BAYER-200911797NA

PATIENT
  Age: 81 Year
  Sex: Male

DRUGS (4)
  1. DACARBAZINE [Suspect]
     Indication: MALIGNANT MELANOMA
     Route: 042
  2. DASATINIB [Suspect]
     Indication: MALIGNANT MELANOMA
     Dosage: TOTAL DAILY DOSE: 140 MG
     Route: 048
  3. LASIX [Concomitant]
  4. DARVOCET [Concomitant]

REACTIONS (6)
  - ASTHENIA [None]
  - DIARRHOEA [None]
  - DYSPNOEA [None]
  - METASTATIC MALIGNANT MELANOMA [None]
  - MYELOPROLIFERATIVE DISORDER [None]
  - PNEUMONIA PRIMARY ATYPICAL [None]
